FAERS Safety Report 4842118-5 (Version None)
Quarter: 2005Q4

REPORT INFORMATION
  Report Type: 
  Country: None (occurrence: None)
  Receive Date: 20051130
  Receipt Date: 20051004
  Transmission Date: 20060501
  Serious: Yes (Hospitalization, Other)
  Sender: FDA-Public Use
  Company Number: US-MERCK-0510USA02343

PATIENT
  Age: 80 Year
  Sex: Female
  Weight: 60 kg

DRUGS (4)
  1. VIOXX [Suspect]
     Indication: ARTHRITIS
     Route: 048
     Dates: start: 19991102
  2. TUMS [Concomitant]
     Route: 065
  3. FOSAMAX [Concomitant]
     Route: 048
  4. VITAMINS (UNSPECIFIED) [Concomitant]
     Route: 065

REACTIONS (5)
  - ADVERSE EVENT [None]
  - AMNESIA [None]
  - CEREBROVASCULAR ACCIDENT [None]
  - DIZZINESS [None]
  - MYOCARDIAL INFARCTION [None]
